FAERS Safety Report 20740381 (Version 1)
Quarter: 2022Q2

REPORT INFORMATION
  Report Type: Spontaneous
  Country: US (occurrence: US)
  Receive Date: 20220422
  Receipt Date: 20220422
  Transmission Date: 20220720
  Serious: Yes (Other)
  Sender: FDA-Public Use
  Company Number: US-SA-SAC20220422000190

PATIENT
  Sex: Female

DRUGS (1)
  1. DUPIXENT [Suspect]
     Active Substance: DUPILUMAB
     Indication: Chronic rhinosinusitis with nasal polyps
     Dosage: 300 MG, QOW
     Route: 058

REACTIONS (6)
  - Angle closure glaucoma [Unknown]
  - Bronchitis [Unknown]
  - Cough [Unknown]
  - Drainage [Unknown]
  - Tinnitus [Unknown]
  - Ear discomfort [Unknown]
